FAERS Safety Report 9452194 (Version 1)
Quarter: 2013Q3

REPORT INFORMATION
  Report Type: Spontaneous
  Country: US (occurrence: US)
  Receive Date: 20130812
  Receipt Date: 20130812
  Transmission Date: 20140515
  Serious: No
  Sender: FDA-Public Use
  Company Number: US-009507513-1308USA002173

PATIENT
  Age: 35 Year
  Sex: Female

DRUGS (2)
  1. FOLLISTIM AQ [Suspect]
     Indication: INFERTILITY FEMALE
     Dosage: 100 UNITS DAILY
     Route: 058
  2. MENOPUR [Concomitant]

REACTIONS (1)
  - Ovarian disorder [Not Recovered/Not Resolved]
